FAERS Safety Report 6456353-6 (Version None)
Quarter: 2009Q4

REPORT INFORMATION
  Report Type: 
  Country: None (occurrence: None)
  Receive Date: 20091125
  Receipt Date: 20091118
  Transmission Date: 20100525
  Serious: Yes (Other)
  Sender: FDA-Public Use
  Company Number: US-AMGEN-QUU375319

PATIENT
  Sex: Male

DRUGS (2)
  1. ARANESP [Suspect]
     Indication: ANAEMIA
     Dates: start: 20091028
  2. INTERFERON [Concomitant]

REACTIONS (3)
  - DRUG INEFFECTIVE [None]
  - HAEMOGLOBIN DECREASED [None]
  - WHITE BLOOD CELL COUNT DECREASED [None]
